FAERS Safety Report 8094120 (Version 3)
Quarter: 2013Q3

REPORT INFORMATION
  Report Type: Spontaneous
  Country: IL (occurrence: IL)
  Receive Date: 20110817
  Receipt Date: 20130722
  Transmission Date: 20140515
  Serious: Yes (Hospitalization)
  Sender: FDA-Public Use
  Company Number: US-ASTRAZENECA-2011SE47486

PATIENT
  Age: 66 Year
  Sex: Male

DRUGS (7)
  1. ATACAND [Suspect]
     Route: 048
  2. LOPRESSOR [Suspect]
     Route: 065
  3. PLACEBO [Suspect]
     Indication: TYPE 2 DIABETES MELLITUS
     Route: 048
     Dates: start: 20101227, end: 20111207
  4. METFORMIN HCL [Suspect]
     Indication: DIABETES MELLITUS
     Route: 065
     Dates: end: 20110619
  5. NOVONORM [Suspect]
     Indication: DIABETES MELLITUS
     Route: 065
  6. LANTUS [Suspect]
     Indication: DIABETES MELLITUS
     Route: 065
  7. ASPIRIN [Concomitant]
     Dosage: 1 DF : ={100MG

REACTIONS (5)
  - Presyncope [Recovered/Resolved]
  - Diastolic dysfunction [None]
  - Mitral valve calcification [None]
  - Pulmonary hypertension [None]
  - Left ventricular hypertrophy [None]
